FAERS Safety Report 4874507-7 (Version None)
Quarter: 2006Q1

REPORT INFORMATION
  Report Type: 
  Country: None (occurrence: None)
  Receive Date: 20060104
  Receipt Date: 20060104
  Transmission Date: 20060701
  Serious: No
  Sender: FDA-Public Use
  Company Number: None

PATIENT
  Sex: Female

DRUGS (1)
  1. RISPERDAL [Suspect]
     Indication: BIPOLAR I DISORDER
     Dosage: 0.5 MG HS PO
     Route: 048
     Dates: start: 20051224, end: 20051226

REACTIONS (1)
  - EXTRAPYRAMIDAL DISORDER [None]
